FAERS Safety Report 4303896-7 (Version None)
Quarter: 2004Q1

REPORT INFORMATION
  Report Type: 
  Country: None (occurrence: None)
  Receive Date: 20040222
  Receipt Date: 20040210
  Transmission Date: 20041129
  Serious: Yes (Hospitalization, Other)
  Sender: FDA-Public Use
  Company Number: 200402253

PATIENT
  Age: 60 Year
  Sex: Female

DRUGS (3)
  1. IBUPROFEN [Suspect]
     Indication: PAIN
     Dosage: 800 MG TID PO
     Route: 048
  2. HYDROCHLOROTHIAZIDE [Concomitant]
  3. CAPTOPRIL [Concomitant]

REACTIONS (13)
  - ANAEMIA [None]
  - BLOOD CREATINE INCREASED [None]
  - BLOOD CULTURE POSITIVE [None]
  - BLOOD UREA INCREASED [None]
  - CARDIAC MURMUR [None]
  - COOMBS TEST POSITIVE [None]
  - ENTEROBACTER INFECTION [None]
  - KLEBSIELLA INFECTION [None]
  - PYREXIA [None]
  - SEPSIS [None]
  - STREPTOCOCCAL INFECTION [None]
  - URINARY TRACT INFECTION [None]
  - WHITE BLOOD CELL COUNT INCREASED [None]
